FAERS Safety Report 7556523-X (Version None)
Quarter: 2011Q2

REPORT INFORMATION
  Report Type: 
  Country: None (occurrence: None)
  Receive Date: 20110609
  Receipt Date: 20110531
  Transmission Date: 20111010
  Serious: Yes (Hospitalization)
  Sender: FDA-Public Use
  Company Number: 2011SP025298

PATIENT
  Age: 69 Year
  Sex: Male

DRUGS (2)
  1. TEMODAL [Suspect]
     Indication: GLIOBLASTOMA MULTIFORME
     Dosage: 140 MG;
     Dates: start: 20110503, end: 20110516
  2. DEXAMETHASONE [Concomitant]

REACTIONS (8)
  - LOWER RESPIRATORY TRACT INFECTION [None]
  - HEMIPARESIS [None]
  - LETHARGY [None]
  - DECREASED APPETITE [None]
  - DEHYDRATION [None]
  - CONFUSIONAL STATE [None]
  - VOMITING [None]
  - NAUSEA [None]
